FAERS Safety Report 6783203-0 (Version None)
Quarter: 2010Q2

REPORT INFORMATION
  Report Type: 
  Country: None (occurrence: None)
  Receive Date: 20100622
  Receipt Date: 20100510
  Transmission Date: 20101027
  Serious: No
  Sender: FDA-Public Use
  Company Number: US-JNJFOC-20100505020

PATIENT
  Age: 51 Year
  Sex: Female
  Weight: 81.65 kg

DRUGS (6)
  1. INVEGA SUSTENNA [Suspect]
     Indication: DRUG USE FOR UNKNOWN INDICATION
     Route: 030
  2. INVEGA SUSTENNA [Suspect]
     Route: 030
  3. NEURONTIN [Concomitant]
  4. TEGRETOL [Concomitant]
  5. LITHIUM CARBONATE [Concomitant]
  6. AMBIEN [Concomitant]

REACTIONS (6)
  - AGITATION [None]
  - DECREASED APPETITE [None]
  - INJECTION SITE NODULE [None]
  - INJECTION SITE PAIN [None]
  - INJECTION SITE SWELLING [None]
  - IRRITABILITY [None]
